FAERS Safety Report 6595835-3 (Version None)
Quarter: 2010Q1

REPORT INFORMATION
  Report Type: 
  Country: None (occurrence: None)
  Receive Date: 20100204
  Receipt Date: 20100105
  Transmission Date: 20100710
  Serious: No
  Sender: FDA-Public Use
  Company Number: 2010-00175

PATIENT
  Age: 85 Year
  Sex: Male

DRUGS (1)
  1. RAPAFLO [Suspect]
     Indication: BENIGN PROSTATIC HYPERPLASIA
     Dosage: 1 CAPSUL, QPM WITH EVENING MEAL, ORAL
     Route: 048
     Dates: start: 20091219

REACTIONS (1)
  - ABDOMINAL PAIN [None]
